FAERS Safety Report 25804318 (Version 1)
Quarter: 2025Q3

REPORT INFORMATION
  Report Type: Spontaneous
  Country: JP (occurrence: JP)
  Receive Date: 20250915
  Receipt Date: 20250915
  Transmission Date: 20251020
  Serious: Yes (Other)
  Sender: TAKEDA
  Company Number: JP-TAKEDA-2025TUS080132

PATIENT
  Age: 5 Decade
  Sex: Male

DRUGS (2)
  1. LIALDA [Suspect]
     Active Substance: MESALAMINE
     Indication: Colitis ulcerative
     Dosage: 4800 MILLIGRAM, QD
  2. AZATHIOPRINE [Concomitant]
     Active Substance: AZATHIOPRINE
     Indication: Colitis ulcerative
     Dosage: 25 MILLIGRAM, QD

REACTIONS (5)
  - Haematochezia [Unknown]
  - Frequent bowel movements [Unknown]
  - Haemoglobin increased [Unknown]
  - Red blood cell sedimentation rate abnormal [Unknown]
  - Diarrhoea [Unknown]
